FAERS Safety Report 5421076-9 (Version None)
Quarter: 2007Q3

REPORT INFORMATION
  Report Type: 
  Country: None (occurrence: None)
  Receive Date: 20070821
  Receipt Date: 20070820
  Transmission Date: 20080115
  Serious: Yes (Death, Hospitalization, Disabling)
  Sender: FDA-Public Use
  Company Number: D0053779A

PATIENT
  Age: 78 Year
  Sex: Female

DRUGS (7)
  1. QUILONUM RETARD [Suspect]
     Indication: BIPOLAR DISORDER
     Dosage: 450MG SEE DOSAGE TEXT
     Route: 048
     Dates: start: 19940101, end: 20070617
  2. LITHIUM CARBONATE [Concomitant]
     Indication: BIPOLAR DISORDER
     Route: 048
     Dates: start: 19720101, end: 19940101
  3. AMITRIPTYLINE HCL [Concomitant]
     Indication: BIPOLAR DISORDER
     Dosage: 75MG UNKNOWN
     Route: 048
  4. ASS-RATIOPHARM [Concomitant]
     Dosage: 100MG UNKNOWN
     Route: 048
  5. DEDREI [Concomitant]
     Route: 048
  6. ALENDRONATE SODIUM [Concomitant]
     Route: 048
  7. ANTIBIOTIC [Concomitant]
     Indication: BRONCHITIS
     Route: 065
     Dates: start: 20070101, end: 20070101

REACTIONS (18)
  - ABASIA [None]
  - APNOEA [None]
  - BRAIN STEM SYNDROME [None]
  - BRONCHITIS [None]
  - CHOKING [None]
  - DEATH [None]
  - DIALYSIS [None]
  - DISABILITY [None]
  - DYSARTHRIA [None]
  - DYSPNOEA [None]
  - DYSSTASIA [None]
  - EYE OEDEMA [None]
  - GAIT DISTURBANCE [None]
  - GENERALISED OEDEMA [None]
  - HYPERTENSION [None]
  - MOBILITY DECREASED [None]
  - RENAL FAILURE [None]
  - THERAPEUTIC AGENT TOXICITY [None]
